FAERS Safety Report 15488927 (Version 1)
Quarter: 2018Q4

REPORT INFORMATION
  Report Type: Spontaneous
  Country: GB (occurrence: GB)
  Receive Date: 20181004
  Receipt Date: 20181004
  Transmission Date: 20190205
  Serious: Yes (Other)
  Sender: FDA-Public Use
  Company Number: None

PATIENT
  Age: 48 Year
  Sex: Female
  Weight: 97 kg

DRUGS (4)
  1. CIPROFLOXACIN 500MG TAB [Suspect]
     Active Substance: CIPROFLOXACIN
     Indication: BRONCHITIS
     Dosage: ?          QUANTITY:1 TABLET(S);?
     Route: 048
     Dates: start: 20180924, end: 20181003
  2. CORTICOSTEROID [Concomitant]
     Active Substance: CORTICOSTEROID NOS
  3. TYLENOL MAX STENGTH [Concomitant]
  4. SALBUTAMOL SULPHATE [Concomitant]
     Active Substance: ALBUTEROL SULFATE

REACTIONS (2)
  - Tendonitis [None]
  - Loss of personal independence in daily activities [None]

NARRATIVE: CASE EVENT DATE: 20181003
